FAERS Safety Report 21884184 (Version 1)
Quarter: 2023Q1

REPORT INFORMATION
  Report Type: Spontaneous
  Country: US (occurrence: US)
  Receive Date: 20230119
  Receipt Date: 20230119
  Transmission Date: 20230418
  Serious: Yes (Death, Life-Threatening)
  Sender: FDA-Public Use
  Company Number: US-drreddys-LIT/USA/23/0160001

PATIENT
  Age: 60 Year
  Sex: Male

DRUGS (6)
  1. CETIRIZINE [Suspect]
     Active Substance: CETIRIZINE HYDROCHLORIDE
     Indication: Cutaneous T-cell lymphoma
  2. HYDROXYZINE HYDROCHLORIDE [Suspect]
     Active Substance: HYDROXYZINE HYDROCHLORIDE
     Indication: Cutaneous T-cell lymphoma
  3. NAPROXEN [Suspect]
     Active Substance: NAPROXEN
     Indication: Cutaneous T-cell lymphoma
  4. HYDROCORTISONE [Suspect]
     Active Substance: HYDROCORTISONE
     Indication: Cutaneous T-cell lymphoma
     Route: 061
  5. PREDNISONE [Suspect]
     Active Substance: PREDNISONE
     Indication: Cutaneous T-cell lymphoma
     Route: 048
  6. TRIAMCINOLONE [Suspect]
     Active Substance: TRIAMCINOLONE
     Indication: Cutaneous T-cell lymphoma
     Route: 061

REACTIONS (3)
  - Cutaneous T-cell lymphoma [Fatal]
  - Disease progression [Fatal]
  - Drug ineffective for unapproved indication [Unknown]
